FAERS Safety Report 22312560 (Version 1)
Quarter: 2023Q2

REPORT INFORMATION
  Report Type: Spontaneous
  Country: US (occurrence: US)
  Receive Date: 20230512
  Receipt Date: 20230512
  Transmission Date: 20230722
  Serious: No
  Sender: FDA-Public Use
  Company Number: US-TAKEDA-2023TUS047251

PATIENT
  Age: 19 Year
  Sex: Female
  Weight: 61 kg

DRUGS (2)
  1. VYVANSE [Suspect]
     Active Substance: LISDEXAMFETAMINE DIMESYLATE
     Indication: Attention deficit hyperactivity disorder
     Dosage: 30 MILLIGRAM
     Route: 065
     Dates: start: 20230509, end: 20230510
  2. VYVANSE [Suspect]
     Active Substance: LISDEXAMFETAMINE DIMESYLATE
     Indication: Binge eating

REACTIONS (5)
  - Hypoaesthesia [Unknown]
  - Cardiac murmur [Unknown]
  - Chest pain [Unknown]
  - Heart rate increased [Recovering/Resolving]
  - Dyspnoea [Unknown]
